FAERS Safety Report 5401082-0 (Version None)
Quarter: 2007Q3

REPORT INFORMATION
  Report Type: 
  Country: None (occurrence: None)
  Receive Date: 20070731
  Receipt Date: 20070723
  Transmission Date: 20080115
  Serious: Yes (Other)
  Sender: FDA-Public Use
  Company Number: US-JNJFOC-20070304756

PATIENT
  Age: 83 Year
  Sex: Female
  Weight: 63.5 kg

DRUGS (9)
  1. LEVAQUIN [Suspect]
     Indication: SINUSITIS
     Route: 048
  2. NEXIUM [Concomitant]
     Indication: DYSPEPSIA
     Route: 065
  3. POTASSIUM CHLORIDE [Concomitant]
     Indication: NUTRITIONAL SUPPORT
     Route: 065
  4. LASIX [Concomitant]
     Indication: OEDEMA
     Route: 065
  5. CADUET [Concomitant]
     Route: 065
  6. CADUET [Concomitant]
     Route: 065
  7. PRIMIDONE [Concomitant]
     Route: 065
  8. FOSAMAX PLUS D [Concomitant]
     Indication: OSTEOPOROSIS
     Route: 065
  9. PREMARIN [Concomitant]
     Indication: BLOOD OESTROGEN
     Route: 065

REACTIONS (1)
  - BALANCE DISORDER [None]
